FAERS Safety Report 25065193 (Version 1)
Quarter: 2025Q1

REPORT INFORMATION
  Report Type: Report from Study
  Country: US (occurrence: JP)
  Receive Date: 20250311
  Receipt Date: 20250311
  Transmission Date: 20250409
  Serious: Yes (Hospitalization)
  Sender: NEUROCRINE BIOSCIENCES
  Company Number: US-NEUROCRINE BIOSCIENCES INC.-2023NBI10781

PATIENT
  Age: 61 Year
  Sex: Male

DRUGS (11)
  1. VALBENAZINE [Suspect]
     Active Substance: VALBENAZINE
     Indication: Tardive dyskinesia
     Route: 048
     Dates: start: 20240314
  2. VALBENAZINE [Suspect]
     Active Substance: VALBENAZINE
     Route: 048
     Dates: start: 20231113, end: 20240313
  3. PEROSPIRONE HYDROCHLORIDE [Suspect]
     Active Substance: PEROSPIRONE HYDROCHLORIDE
     Indication: Schizophrenia
     Route: 048
     Dates: start: 20231004
  4. MAGNESIUM OXIDE [Concomitant]
     Active Substance: MAGNESIUM OXIDE
  5. EPHEDRA SINICA STEM\HERBALS [Concomitant]
     Active Substance: EPHEDRA SINICA STEM\HERBALS
  6. SILODOSIN OD [Concomitant]
  7. MIRABEGRON [Concomitant]
     Active Substance: MIRABEGRON
  8. ZONISAMIDE [Concomitant]
     Active Substance: ZONISAMIDE
  9. FLUNITRAZEPAM [Concomitant]
     Active Substance: FLUNITRAZEPAM
  10. CLONAZEPAM [Concomitant]
     Active Substance: CLONAZEPAM
  11. BROTIZOLAM [Concomitant]
     Active Substance: BROTIZOLAM

REACTIONS (1)
  - Hospitalisation [Unknown]
